FAERS Safety Report 23431525 (Version 1)
Quarter: 2024Q1

REPORT INFORMATION
  Report Type: Spontaneous
  Country: DE (occurrence: DE)
  Receive Date: 20240123
  Receipt Date: 20240123
  Transmission Date: 20240410
  Serious: Yes (Hospitalization)
  Sender: FDA-Public Use
  Company Number: DE-ADRED-05137-01

PATIENT
  Age: 75 Year
  Sex: Male

DRUGS (36)
  1. TAMSULOSIN [Suspect]
     Active Substance: TAMSULOSIN
     Indication: Product used for unknown indication
     Dosage: 0.4 MG, 0-0-1-0
  2. TAMSULOSIN [Suspect]
     Active Substance: TAMSULOSIN
     Indication: Product used for unknown indication
     Dosage: 0.4 MG, 0-0-1-0
  3. METFORMIN [Suspect]
     Active Substance: METFORMIN HYDROCHLORIDE
     Indication: Product used for unknown indication
  4. METFORMIN [Suspect]
     Active Substance: METFORMIN HYDROCHLORIDE
     Indication: Product used for unknown indication
     Dosage: 1000 MG, 1-0-0-0
     Route: 065
  5. RAMIPRIL [Suspect]
     Active Substance: RAMIPRIL
     Indication: Product used for unknown indication
     Dosage: 5 MG, 0-0-1-0
  6. RAMIPRIL [Suspect]
     Active Substance: RAMIPRIL
     Indication: Product used for unknown indication
     Dosage: 5 MG, 0-0-1-0
     Route: 065
  7. AMIODARONE [Suspect]
     Active Substance: AMIODARONE
     Indication: Product used for unknown indication
  8. AMIODARONE [Suspect]
     Active Substance: AMIODARONE
     Indication: Product used for unknown indication
     Dosage: 200 MG, 1-0-0-0
  9. FLUTICASONE PROPIONATE\SALMETEROL XINAFOATE [Suspect]
     Active Substance: FLUTICASONE PROPIONATE\SALMETEROL XINAFOATE
     Indication: Product used for unknown indication
     Dosage: NK MG, 3X
     Route: 067
  10. COREG [Suspect]
     Active Substance: CARVEDILOL
     Indication: Product used for unknown indication
  11. COREG [Suspect]
     Active Substance: CARVEDILOL
     Dosage: 6.25 MG, 2-0-0-0
     Route: 065
  12. TORSEMIDE [Suspect]
     Active Substance: TORSEMIDE
     Dosage: 10 MG, 5-3-0-0
  13. TORSEMIDE [Suspect]
     Active Substance: TORSEMIDE
     Indication: Product used for unknown indication
     Dosage: 10 MG, 5-3-0-0
  14. TORSEMIDE [Suspect]
     Active Substance: TORSEMIDE
     Dosage: 10 MG, 3X
  15. DEMADEX [Suspect]
     Active Substance: TORSEMIDE
     Indication: Product used for unknown indication
  16. DEMADEX [Suspect]
     Active Substance: TORSEMIDE
  17. CARVEDILOL [Suspect]
     Active Substance: CARVEDILOL
     Indication: Product used for unknown indication
     Dosage: 6.25 MG, 2-0-0-0
     Route: 065
  18. ALBUTEROL [Concomitant]
     Active Substance: ALBUTEROL
     Dosage: NK MG, 3X
  19. ALBUTEROL [Concomitant]
     Active Substance: ALBUTEROL
     Indication: Product used for unknown indication
     Dosage: NK MG, 3X
  20. APIXABAN [Concomitant]
     Active Substance: APIXABAN
     Dosage: 5 MG, 1-0-1-0
  21. APIXABAN [Concomitant]
     Active Substance: APIXABAN
     Indication: Product used for unknown indication
     Dosage: 5 MG, 1-0-1-0
  22. LEVOTHYROXINE SODIUM [Concomitant]
     Active Substance: LEVOTHYROXINE SODIUM
     Dosage: 100 G, 1-0-0-0
  23. LEVOTHYROXINE SODIUM [Concomitant]
     Active Substance: LEVOTHYROXINE SODIUM
     Indication: Product used for unknown indication
     Dosage: 100 MICROG, 1-0-0-0
  24. RASAGILINE [Concomitant]
     Active Substance: RASAGILINE
     Dosage: 1 MG, 3X
  25. RASAGILINE [Concomitant]
     Active Substance: RASAGILINE
     Indication: Product used for unknown indication
     Dosage: 1 MG, 3X
  26. MIRTAZAPINE [Concomitant]
     Active Substance: MIRTAZAPINE
     Dosage: 15 MG, 0-0-0-0.5
  27. MIRTAZAPINE [Concomitant]
     Active Substance: MIRTAZAPINE
     Indication: Product used for unknown indication
     Dosage: 15 MG, 0-0-0-0.5
  28. ALLOPURINOL [Concomitant]
     Active Substance: ALLOPURINOL
     Dosage: 300 MG, 0.5-0-0-0
  29. ALLOPURINOL [Concomitant]
     Active Substance: ALLOPURINOL
     Indication: Product used for unknown indication
     Dosage: 300 MG, 0.5-0-0-0
  30. AMANTADINE [Concomitant]
     Active Substance: AMANTADINE
  31. FINASTERIDE [Concomitant]
     Active Substance: FINASTERIDE
  32. FINASTERIDE [Concomitant]
     Active Substance: FINASTERIDE
     Indication: Product used for unknown indication
     Dosage: 5 MG, 1-0-0-0
  33. FLUTICASONE FUROATE\SALMETEROL XINAFOATE [Concomitant]
     Active Substance: FLUTICASONE FUROATE\SALMETEROL XINAFOATE
     Indication: Product used for unknown indication
     Dosage: NK MG, 3X
     Route: 067
  34. PRAMIPEXOLE [Concomitant]
     Active Substance: PRAMIPEXOLE\PRAMIPEXOLE DIHYDROCHLORIDE
     Indication: Product used for unknown indication
     Dosage: 3.15 MG, 1-0-0-0
  35. AMANTADINE [Concomitant]
     Active Substance: AMANTADINE
     Indication: Product used for unknown indication
     Dosage: 100 MG, 1X
  36. Steglujan 100mg/5mg [Concomitant]
     Indication: Product used for unknown indication
     Dosage: 5|100 MG, 1-0-0-0

REACTIONS (4)
  - Cardiac failure [Unknown]
  - Bradycardia [Unknown]
  - Dyspnoea [Unknown]
  - Dyspnoea exertional [Unknown]

NARRATIVE: CASE EVENT DATE: 20200522
